FAERS Safety Report 10912546 (Version 1)
Quarter: 2015Q1

REPORT INFORMATION
  Report Type: Spontaneous
  Country: IL (occurrence: IL)
  Receive Date: 20150313
  Receipt Date: 20150313
  Transmission Date: 20150721
  Serious: Yes (Other)
  Sender: FDA-Public Use
  Company Number: IL-SA-2015SA025783

PATIENT
  Age: 7 Month
  Sex: Male
  Weight: 7.48 kg

DRUGS (1)
  1. MYOZYME [Suspect]
     Active Substance: ALGLUCOSIDASE ALFA
     Indication: GLYCOGEN STORAGE DISEASE TYPE II
     Dosage: 50MG/VIAL
     Route: 041
     Dates: start: 20150212

REACTIONS (3)
  - Apathy [Recovered/Resolved]
  - Unresponsive to stimuli [Recovered/Resolved]
  - Drug administration error [Unknown]

NARRATIVE: CASE EVENT DATE: 20150301
